FAERS Safety Report 6226136-0 (Version None)
Quarter: 2009Q2

REPORT INFORMATION
  Report Type: 
  Country: None (occurrence: None)
  Receive Date: 20090612
  Receipt Date: 20090520
  Transmission Date: 20091009
  Serious: No
  Sender: FDA-Public Use
  Company Number: US-ABBOTT-09P-163-0572424-00

PATIENT
  Sex: Female

DRUGS (5)
  1. HUMIRA [Suspect]
     Indication: CROHN'S DISEASE
     Dates: start: 20090430
  2. HUMIRA [Suspect]
  3. LORTAB [Concomitant]
     Indication: HEADACHE
     Dates: start: 20090508
  4. VICODIN [Concomitant]
     Indication: HEADACHE
  5. VICODIN [Concomitant]
     Indication: BACK DISORDER

REACTIONS (3)
  - HEADACHE [None]
  - MIGRAINE [None]
  - VISION BLURRED [None]
